FAERS Safety Report 5062445-9 (Version None)
Quarter: 2006Q3

REPORT INFORMATION
  Report Type: 
  Country: None (occurrence: None)
  Receive Date: 20060721
  Receipt Date: 20060711
  Transmission Date: 20061208
  Serious: Yes (Other)
  Sender: FDA-Public Use
  Company Number: 146581USA

PATIENT
  Age: 57 Year
  Sex: Female

DRUGS (1)
  1. COPAXONE [Suspect]
     Indication: MULTIPLE SCLEROSIS
     Dosage: 20 MILLIGRAM QD, SUBCUTANEOUS
     Route: 058
     Dates: start: 20030101

REACTIONS (4)
  - B-CELL LYMPHOMA [None]
  - BREAST DISORDER FEMALE [None]
  - LYMPHOCYTOSIS [None]
  - WRONG TECHNIQUE IN DRUG USAGE PROCESS [None]
